FAERS Safety Report 7791416-4 (Version None)
Quarter: 2011Q4

REPORT INFORMATION
  Report Type: 
  Country: None (occurrence: None)
  Receive Date: 20111003
  Receipt Date: 20110921
  Transmission Date: 20120403
  Serious: Yes (Other)
  Sender: FDA-Public Use
  Company Number: CA-JNJFOC-20110909953

PATIENT
  Sex: Female
  Weight: 60.5 kg

DRUGS (4)
  1. TYLENOL W/ CODEINE NO. 3 [Concomitant]
  2. PREMPLUS [Concomitant]
  3. REMICADE [Suspect]
     Indication: CROHN'S DISEASE
     Dosage: 22 INFUSIONS
     Route: 042
     Dates: start: 20070721
  4. METHOTREXATE [Concomitant]

REACTIONS (1)
  - BUNION OPERATION [None]
